FAERS Safety Report 23058834 (Version 1)
Quarter: 2023Q4

REPORT INFORMATION
  Report Type: Spontaneous
  Country: DE (occurrence: DE)
  Receive Date: 20231012
  Receipt Date: 20231012
  Transmission Date: 20240110
  Serious: Yes (Other)
  Sender: FDA-Public Use
  Company Number: DE-MLMSERVICE-20230720-4397943-1

PATIENT
  Age: 56 Year
  Sex: Male

DRUGS (19)
  1. IBUPROFEN [Suspect]
     Active Substance: IBUPROFEN
     Indication: Post-traumatic headache
     Dosage: UNK
     Route: 065
     Dates: end: 201606
  2. IBUPROFEN [Suspect]
     Active Substance: IBUPROFEN
     Indication: Migraine
     Dosage: UNK, AS NECESSARY(EVERY 4?5 DAYS)
     Route: 065
     Dates: start: 201807
  3. IBUPROFEN [Suspect]
     Active Substance: IBUPROFEN
     Indication: Headache
  4. BENSERAZIDE\LEVODOPA [Suspect]
     Active Substance: BENSERAZIDE\LEVODOPA
     Indication: Restless legs syndrome
     Dosage: UNK
     Route: 065
     Dates: start: 201710
  5. BENSERAZIDE\LEVODOPA [Suspect]
     Active Substance: BENSERAZIDE\LEVODOPA
     Indication: Post-traumatic headache
     Dosage: UNK, AS NECESSARY(EVERY 4?5 DAYS)
     Route: 065
     Dates: start: 201807
  6. BENSERAZIDE\LEVODOPA [Suspect]
     Active Substance: BENSERAZIDE\LEVODOPA
     Indication: Migraine
  7. AMITRIPTYLINE [Suspect]
     Active Substance: AMITRIPTYLINE
     Indication: Migraine
     Dosage: 10 MILLIGRAM, ONCE A DAY
     Route: 065
     Dates: start: 201605
  8. AMITRIPTYLINE [Suspect]
     Active Substance: AMITRIPTYLINE
     Indication: Headache
     Dosage: 20 MILLIGRAM
     Route: 065
     Dates: start: 201605
  9. AMITRIPTYLINE [Suspect]
     Active Substance: AMITRIPTYLINE
     Dosage: UNK
     Route: 065
     Dates: start: 201710
  10. METAMIZOLE [Suspect]
     Active Substance: METAMIZOLE
     Indication: Headache
     Dosage: UNK
     Route: 065
  11. TRAMADOL [Suspect]
     Active Substance: TRAMADOL\TRAMADOL HYDROCHLORIDE
     Indication: Headache
     Dosage: 50 MILLIGRAM
     Route: 065
     Dates: end: 201606
  12. ACETAMINOPHEN, ASPIRIN AND CAFFEINE [Suspect]
     Active Substance: ACETAMINOPHEN\ASPIRIN\CAFFEINE
     Indication: Headache
     Dosage: UNK
     Route: 065
     Dates: end: 201606
  13. DIPYRONE [Concomitant]
     Active Substance: DIPYRONE
     Indication: Product used for unknown indication
     Dosage: UNK
     Route: 065
  14. ERENUMAB [Concomitant]
     Active Substance: ERENUMAB
     Indication: Migraine
     Dosage: 70 MILLIGRAM/MONTH
     Route: 058
  15. ERENUMAB [Concomitant]
     Active Substance: ERENUMAB
     Indication: Headache
  16. LISINOPRIL [Concomitant]
     Active Substance: LISINOPRIL
     Indication: Hypertension
     Dosage: UNK
     Route: 065
  17. METOPROLOL [Concomitant]
     Active Substance: METOPROLOL
     Indication: Migraine
     Dosage: UNK
     Route: 065
  18. METOPROLOL [Concomitant]
     Active Substance: METOPROLOL
     Indication: Headache
  19. ROTIGOTINE [Concomitant]
     Active Substance: ROTIGOTINE
     Indication: Restless legs syndrome
     Dosage: UNK
     Route: 065

REACTIONS (6)
  - Fatigue [Unknown]
  - Dry mouth [Unknown]
  - Libido disorder [Unknown]
  - Restless legs syndrome [Recovered/Resolved]
  - Drug ineffective [Unknown]
  - Intentional product misuse [Unknown]

NARRATIVE: CASE EVENT DATE: 20171001
